FAERS Safety Report 13121508 (Version 1)
Quarter: 2017Q1

REPORT INFORMATION
  Report Type: Spontaneous
  Country: FR (occurrence: FR)
  Receive Date: 20170117
  Receipt Date: 20170117
  Transmission Date: 20170428
  Serious: Yes (Hospitalization)
  Sender: FDA-Public Use
  Company Number: FR-GUERBET LLC-1062065

PATIENT
  Age: 47 Year
  Sex: Male

DRUGS (8)
  1. FRAGMIN [Suspect]
     Active Substance: DALTEPARIN SODIUM
     Route: 058
     Dates: start: 20150420
  2. LIORESAL [Concomitant]
     Active Substance: BACLOFEN
  3. DEXAMETHASONE. [Suspect]
     Active Substance: DEXAMETHASONE
     Route: 042
     Dates: start: 20150420, end: 20150423
  4. XENETIX [Suspect]
     Active Substance: IOBITRIDOL
     Route: 042
     Dates: start: 20150420
  5. ROCEPHIN [Suspect]
     Active Substance: CEFTRIAXONE SODIUM
     Route: 042
     Dates: start: 20150420, end: 20150430
  6. DOTAREM [Suspect]
     Active Substance: GADOTERATE MEGLUMINE
     Indication: NUCLEAR MAGNETIC RESONANCE IMAGING
     Route: 042
     Dates: start: 20150422
  7. LAROXYL [Concomitant]
     Active Substance: AMITRIPTYLINE
  8. TRAMADOL. [Concomitant]
     Active Substance: TRAMADOL

REACTIONS (4)
  - Thrombocytopenia [Recovering/Resolving]
  - Rash maculo-papular [Recovered/Resolved]
  - Haemoglobin decreased [Recovered/Resolved]
  - Transaminases increased [Recovered/Resolved]

NARRATIVE: CASE EVENT DATE: 20150428
